FAERS Safety Report 13692434 (Version 2)
Quarter: 2017Q2

REPORT INFORMATION
  Report Type: Spontaneous
  Country: RU (occurrence: RU)
  Receive Date: 20170627
  Receipt Date: 20170630
  Transmission Date: 20170830
  Serious: Yes (Other)
  Sender: FDA-Public Use
  Company Number: RU-ASTRAZENECA-2017SE65063

PATIENT
  Age: 62 Year
  Sex: Female
  Weight: 89 kg

DRUGS (8)
  1. ENAP [Concomitant]
     Active Substance: ENALAPRIL
  2. BRILINTA [Suspect]
     Active Substance: TICAGRELOR
     Indication: STENT PLACEMENT
     Route: 048
     Dates: start: 201703
  3. BRILINTA [Suspect]
     Active Substance: TICAGRELOR
     Indication: ANGINA UNSTABLE
     Route: 048
     Dates: start: 201703
  4. THROMBO ASS [Concomitant]
     Active Substance: ASPIRIN
  5. VEROSPIRON [Concomitant]
     Active Substance: SPIRONOLACTONE
  6. ATORIS [Concomitant]
     Active Substance: ATORVASTATIN CALCIUM
  7. AMLODIP [Concomitant]
  8. EGYLOC [Concomitant]

REACTIONS (1)
  - Vascular stent thrombosis [Unknown]
